FAERS Safety Report 10610406 (Version 3)
Quarter: 2014Q4

REPORT INFORMATION
  Report Type: Report from Study
  Country: US (occurrence: US)
  Receive Date: 20141126
  Receipt Date: 20141218
  Transmission Date: 20150529
  Serious: Yes (Hospitalization, Other)
  Sender: FDA-Public Use
  Company Number: US-BAYER-2014-167287

PATIENT
  Age: 40 Year
  Sex: Male

DRUGS (1)
  1. NEXAVAR [Suspect]
     Active Substance: SORAFENIB
     Indication: HEPATIC CANCER
     Dosage: 400 MG, BID
     Route: 048
     Dates: start: 20141027, end: 20141124

REACTIONS (6)
  - Aphagia [None]
  - Micturition urgency [None]
  - Hospitalisation [None]
  - Urinary retention [None]
  - Constipation [None]
  - Abdominal pain upper [None]

NARRATIVE: CASE EVENT DATE: 201411
